FAERS Safety Report 7580279-8 (Version None)
Quarter: 2011Q2

REPORT INFORMATION
  Report Type: 
  Country: None (occurrence: None)
  Receive Date: 20110629
  Receipt Date: 20110613
  Transmission Date: 20111010
  Serious: No
  Sender: FDA-Public Use
  Company Number: US-B.I. PHARMACEUTICALS,INC./RIDGEFIELD-2011-BP-15279BP

PATIENT
  Sex: Female

DRUGS (9)
  1. PRADAXA [Suspect]
     Indication: ATRIAL FIBRILLATION
     Dosage: 300 MG
     Route: 048
     Dates: start: 20110501
  2. VITAMIN D (DRISDOL) [Concomitant]
     Indication: ROUTINE HEALTH MAINTENANCE
     Route: 048
     Dates: start: 20090101
  3. LIPITOR [Concomitant]
     Indication: BLOOD CHOLESTEROL INCREASED
     Dosage: 20 MG
     Route: 048
     Dates: start: 19960101
  4. SYNTHROID [Concomitant]
     Indication: THYROID DISORDER
     Dosage: 112 MEQ
     Route: 048
     Dates: start: 19960101
  5. VITAMIN B-12 [Concomitant]
     Indication: ROUTINE HEALTH MAINTENANCE
     Route: 048
     Dates: start: 20080101
  6. CALCIUM CARBONATE [Concomitant]
     Indication: ROUTINE HEALTH MAINTENANCE
     Route: 048
     Dates: start: 20080101
  7. ALTACE [Concomitant]
     Indication: HYPERTENSION
     Dosage: 7.5 MG
     Route: 048
     Dates: start: 20010101
  8. TENORMIN [Concomitant]
     Indication: HYPERTENSION
     Dosage: 75 MG
     Route: 048
     Dates: start: 20010101
  9. ALIGN (PROBASIC) [Concomitant]
     Indication: ROUTINE HEALTH MAINTENANCE
     Route: 048
     Dates: start: 20080101

REACTIONS (2)
  - GASTRIC PH DECREASED [None]
  - FATIGUE [None]
